FAERS Safety Report 5788407-1 (Version None)
Quarter: 2008Q2

REPORT INFORMATION
  Report Type: 
  Country: None (occurrence: None)
  Receive Date: 20080620
  Receipt Date: 20080611
  Transmission Date: 20081010
  Serious: Yes (Death, Hospitalization, Other)
  Sender: FDA-Public Use
  Company Number: FABR-1000257

PATIENT
  Age: 60 Year
  Sex: Female
  Weight: 56.4 kg

DRUGS (17)
  1. FABRAZYME [Suspect]
     Indication: FABRY'S DISEASE
     Dosage: 1 MG/KG, Q2W, INTRAVENOUS
     Route: 042
     Dates: start: 20030307, end: 20080520
  2. SYNTHROID [Concomitant]
  3. DIGOXIN [Concomitant]
  4. COZAAR [Concomitant]
  5. LISINOPRIL [Concomitant]
  6. AMIODARONE HCL [Concomitant]
  7. COUMADIN [Concomitant]
  8. FOSAMAX [Concomitant]
  9. FERROUS SULFATE TAB [Concomitant]
  10. SPIRIVA [Concomitant]
  11. ALBUTEROL [Concomitant]
  12. FLOVENT [Concomitant]
  13. LASIX [Concomitant]
  14. CALCIUM (CALCIUM) [Concomitant]
  15. ASCORBIC ACID [Concomitant]
  16. ZOFRAN [Concomitant]
  17. NEXIUM [Concomitant]

REACTIONS (16)
  - CARDIAC DISORDER [None]
  - COLON ADENOMA [None]
  - COLONIC POLYP [None]
  - DIZZINESS [None]
  - DYSPNOEA [None]
  - GASTRIC POLYPS [None]
  - GASTRITIS [None]
  - GASTROINTESTINAL HAEMORRHAGE [None]
  - GASTROINTESTINAL TRACT ADENOMA [None]
  - HAEMOGLOBIN DECREASED [None]
  - MITRAL VALVE INCOMPETENCE [None]
  - MYOCARDIAL INFARCTION [None]
  - RENAL FAILURE [None]
  - SCAR [None]
  - TRICUSPID VALVE INCOMPETENCE [None]
  - VENTRICULAR FIBRILLATION [None]
